FAERS Safety Report 26206353 (Version 1)
Quarter: 2025Q4

REPORT INFORMATION
  Report Type: Spontaneous
  Country: EU (occurrence: None)
  Receive Date: 20251229
  Receipt Date: 20251229
  Transmission Date: 20260118
  Serious: Yes (Other)
  Sender: Alvotech
  Company Number: EU-ALVOTECHPMS-2025-ALVOTECHPMS-006166

PATIENT
  Age: 52 Year
  Sex: Female
  Weight: 89 kg

DRUGS (1)
  1. ADALIMUMAB [Suspect]
     Active Substance: ADALIMUMAB
     Indication: Irritable bowel syndrome
     Dosage: EVERY SECOND WEEK
     Route: 058
     Dates: start: 20250630

REACTIONS (1)
  - Monoplegia [Recovered/Resolved]

NARRATIVE: CASE EVENT DATE: 20250101
